FAERS Safety Report 20394853 (Version 2)
Quarter: 2022Q1

REPORT INFORMATION
  Report Type: Spontaneous
  Country: US (occurrence: None)
  Receive Date: 20220130
  Receipt Date: 20220309
  Transmission Date: 20220423
  Serious: No
  Sender: FDA-Public Use
  Company Number: 2022A023623

PATIENT
  Sex: Female
  Weight: 49.9 kg

DRUGS (2)
  1. BUDESONIDE\FORMOTEROL FUMARATE DIHYDRATE [Suspect]
     Active Substance: BUDESONIDE\FORMOTEROL FUMARATE DIHYDRATE
     Indication: Bronchitis chronic
     Route: 055
  2. SYMBICORT [Suspect]
     Active Substance: BUDESONIDE\FORMOTEROL FUMARATE DIHYDRATE
     Indication: Bronchitis chronic
     Dosage: 160/4.5 MCG, 2 PUFFS Q12 HOURS APART, TWO TIMES A DAY
     Route: 055

REACTIONS (8)
  - Ageusia [Unknown]
  - Feeling of despair [Unknown]
  - Rebound effect [Unknown]
  - Feeling abnormal [Unknown]
  - Product dose omission issue [Unknown]
  - Device use issue [Unknown]
  - Drug ineffective [Unknown]
  - Device malfunction [Unknown]
